FAERS Safety Report 25389919 (Version 1)
Quarter: 2025Q2

REPORT INFORMATION
  Report Type: Report from Study
  Country: IT (occurrence: IT)
  Receive Date: 20250603
  Receipt Date: 20250603
  Transmission Date: 20250716
  Serious: Yes (Life-Threatening, Other)
  Sender: PFIZER
  Company Number: IT-PFIZER INC-PV202500065780

PATIENT
  Age: 24 Month
  Sex: Female

DRUGS (2)
  1. GEMCITABINE HYDROCHLORIDE [Suspect]
     Active Substance: GEMCITABINE HYDROCHLORIDE
     Indication: Glioma
  2. OXALIPLATIN [Suspect]
     Active Substance: OXALIPLATIN
     Indication: Glioma

REACTIONS (3)
  - Thrombocytopenia [Unknown]
  - Febrile neutropenia [Unknown]
  - Haemoglobin abnormal [Unknown]
